FAERS Safety Report 26175208 (Version 1)
Quarter: 2025Q4

REPORT INFORMATION
  Report Type: Report from Study
  Country: CA (occurrence: CA)
  Receive Date: 20251218
  Receipt Date: 20251218
  Transmission Date: 20260118
  Serious: Yes (Hospitalization, Other)
  Sender: ELI LILLY AND COMPANY
  Company Number: CA-ELI_LILLY_AND_COMPANY-CA202512011822

PATIENT
  Age: 71 Year
  Sex: Female

DRUGS (2)
  1. JAYPIRCA [Suspect]
     Active Substance: PIRTOBRUTINIB
     Indication: Neoplasm malignant
     Dosage: 100 MG, UNKNOWN
     Route: 048
     Dates: start: 20251204, end: 20251207
  2. JAYPIRCA [Suspect]
     Active Substance: PIRTOBRUTINIB
     Dosage: 200 MG, DAILY
     Route: 048

REACTIONS (4)
  - Decreased immune responsiveness [Unknown]
  - Bone marrow disorder [Unknown]
  - Platelet count decreased [Unknown]
  - Petechiae [Unknown]
